FAERS Safety Report 8049223-3 (Version None)
Quarter: 2012Q1

REPORT INFORMATION
  Report Type: 
  Country: None (occurrence: None)
  Receive Date: 20120117
  Receipt Date: 20120110
  Transmission Date: 20120608
  Serious: Yes (Other)
  Sender: FDA-Public Use
  Company Number: JP-JNJFOC-20111207774

PATIENT
  Age: 71 Year
  Sex: Female

DRUGS (6)
  1. HALOPERIDOL [Concomitant]
     Route: 048
  2. MAGMITT [Concomitant]
     Route: 048
  3. RISPERDAL [Suspect]
     Indication: SCHIZOPHRENIA
     Route: 048
  4. AKIRIDEN [Concomitant]
     Route: 048
  5. TRIAZOLAM [Concomitant]
     Route: 048
  6. ZYPREXA [Suspect]
     Indication: PRODUCT USED FOR UNKNOWN INDICATION
     Route: 048

REACTIONS (1)
  - FLOPPY IRIS SYNDROME [None]
